FAERS Safety Report 19452601 (Version 1)
Quarter: 2021Q2

REPORT INFORMATION
  Report Type: Spontaneous
  Country: US (occurrence: US)
  Receive Date: 20210623
  Receipt Date: 20210623
  Transmission Date: 20210717
  Serious: No
  Sender: FDA-Public Use
  Company Number: US-SA-2021SA204466

PATIENT

DRUGS (1)
  1. DUPIXENT [Suspect]
     Active Substance: DUPILUMAB
     Indication: ECZEMA
     Dosage: UNK
     Route: 065
     Dates: start: 202104

REACTIONS (5)
  - Dyspnoea exertional [Unknown]
  - Throat tightness [Unknown]
  - Chest pain [Unknown]
  - Hypersensitivity [Unknown]
  - Tonsillar hypertrophy [Unknown]

NARRATIVE: CASE EVENT DATE: 2021
